FAERS Safety Report 24643028 (Version 1)
Quarter: 2024Q4

REPORT INFORMATION
  Report Type: Spontaneous
  Country: FR (occurrence: FR)
  Receive Date: 20241120
  Receipt Date: 20241120
  Transmission Date: 20250115
  Serious: Yes (Life-Threatening)
  Sender: AMERICAN REGENT
  Company Number: FR-AMERICAN REGENT INC-2024004230

PATIENT
  Age: 24 Year
  Sex: Female

DRUGS (1)
  1. FERINJECT [Suspect]
     Active Substance: FERRIC CARBOXYMALTOSE
     Indication: Iron deficiency anaemia
     Dosage: 500 MILLIGRAM, 1 IN 1 TOTAL
     Route: 042
     Dates: start: 20240826, end: 20240826

REACTIONS (2)
  - Circulatory collapse [Recovered/Resolved]
  - Maternal exposure timing unspecified [Unknown]

NARRATIVE: CASE EVENT DATE: 20240826
